FAERS Safety Report 6128142-3 (Version None)
Quarter: 2009Q1

REPORT INFORMATION
  Report Type: 
  Country: None (occurrence: None)
  Receive Date: 20090323
  Receipt Date: 20090310
  Transmission Date: 20090719
  Serious: Yes (Hospitalization)
  Sender: FDA-Public Use
  Company Number: CO-ROCHE-620942

PATIENT
  Age: 88 Year
  Sex: Female

DRUGS (2)
  1. BONIVA [Suspect]
     Indication: OSTEOPOROSIS
     Dosage: STOP DATE: JAN 2009, FORM: PILL
     Route: 048
     Dates: start: 20090123
  2. SERETIDE [Concomitant]
     Route: 055

REACTIONS (1)
  - CEREBROVASCULAR ACCIDENT [None]
